FAERS Safety Report 5765070-7 (Version None)
Quarter: 2008Q2

REPORT INFORMATION
  Report Type: 
  Country: None (occurrence: None)
  Receive Date: 20080605
  Receipt Date: 20080528
  Transmission Date: 20081010
  Serious: Yes (Death, Hospitalization, Other)
  Sender: FDA-Public Use
  Company Number: 163-21880-08050167

PATIENT
  Age: 84 Year
  Sex: Male

DRUGS (1)
  1. REVLIMID [Suspect]
     Indication: MULTIPLE MYELOMA
     Dosage: 10 MG, 1 IN 1 D, ORAL
     Route: 048
     Dates: start: 20080131, end: 20080208

REACTIONS (11)
  - ALPHA HAEMOLYTIC STREPTOCOCCAL INFECTION [None]
  - ATRIAL FIBRILLATION [None]
  - BACTERAEMIA [None]
  - BRADYCARDIA [None]
  - CARDIAC ARREST [None]
  - COMA [None]
  - EMBOLIC STROKE [None]
  - FALL [None]
  - PNEUMONIA [None]
  - SYNCOPE [None]
  - THROMBOSIS [None]
